FAERS Safety Report 5140567-1 (Version None)
Quarter: 2006Q4

REPORT INFORMATION
  Report Type: 
  Country: None (occurrence: None)
  Receive Date: 20061023
  Receipt Date: 20061010
  Transmission Date: 20070319
  Serious: Yes (Hospitalization, Other)
  Sender: FDA-Public Use
  Company Number: HQWYE886119SEP06

PATIENT
  Age: 39 Year
  Sex: Male
  Weight: 86 kg

DRUGS (2)
  1. BENEFIX [Suspect]
     Indication: FACTOR VIII DEFICIENCY
     Dosage: INTRAVENOUS
     Route: 042
     Dates: start: 20060701
  2. BENEFIX [Suspect]
     Indication: HAEMORRHAGE PROPHYLAXIS
     Dosage: INTRAVENOUS
     Route: 042
     Dates: start: 20060701

REACTIONS (1)
  - LIVER TRANSPLANT [None]
